FAERS Safety Report 7156095-8 (Version None)
Quarter: 2010Q4

REPORT INFORMATION
  Report Type: 
  Country: None (occurrence: None)
  Receive Date: 20101123
  Receipt Date: 20101001
  Transmission Date: 20110411
  Serious: Yes (Other)
  Sender: FDA-Public Use
  Company Number: 019770

PATIENT
  Sex: Female
  Weight: 40.8 kg

DRUGS (8)
  1. CIMZIA [Suspect]
     Indication: CROHN'S DISEASE
     Dosage: 400 MG 1X/2 WEEKS SUBCUTANEOUS
     Route: 058
     Dates: start: 20100827, end: 20100901
  2. ZITHROMAX [Suspect]
     Indication: PHARYNGITIS STREPTOCOCCAL
     Dosage: 7 DAY COURSE
     Dates: start: 20100101, end: 20100101
  3. PENICILLIN [Suspect]
     Indication: PHARYNGITIS STREPTOCOCCAL
     Dates: start: 20100101, end: 20100101
  4. ACTONEL [Concomitant]
  5. ORTHO-NOVUM [Concomitant]
  6. CANASA [Concomitant]
  7. VITAMIN B-12 [Concomitant]
  8. RELPAX [Concomitant]

REACTIONS (7)
  - IMPAIRED GASTRIC EMPTYING [None]
  - MALAISE [None]
  - PAPULE [None]
  - PHARYNGITIS STREPTOCOCCAL [None]
  - PYREXIA [None]
  - THROAT IRRITATION [None]
  - WEIGHT DECREASED [None]
